FAERS Safety Report 18078998 (Version 4)
Quarter: 2020Q3

REPORT INFORMATION
  Report Type: Spontaneous
  Country: US (occurrence: US)
  Receive Date: 20200728
  Receipt Date: 20200827
  Transmission Date: 20201103
  Serious: Yes (Life-Threatening, Disabling, Other)
  Sender: FDA-Public Use
  Company Number: US-GILEAD-2020-0485015

PATIENT
  Age: 51 Year
  Sex: Male
  Weight: 102.8 kg

DRUGS (25)
  1. DEXAMETHASONE. [Concomitant]
     Active Substance: DEXAMETHASONE
     Indication: COVID-19
     Dosage: 6 MG, QD
     Route: 042
     Dates: start: 20200712, end: 20200721
  2. WHITE PETROLATUM [Concomitant]
     Active Substance: PETROLATUM
     Dosage: 0.25?0.5 INCH
     Dates: start: 20200714, end: 20200813
  3. FENTANYL. [Concomitant]
     Active Substance: FENTANYL
     Indication: PAIN
     Dosage: 50 MCG
     Route: 042
     Dates: start: 20200713, end: 20200713
  4. HEPARIN [Concomitant]
     Active Substance: HEPARIN SODIUM
     Dosage: 1810 UNITS
     Route: 042
     Dates: start: 20200713, end: 20200713
  5. REMDESIVIR. [Suspect]
     Active Substance: REMDESIVIR
     Dosage: 100 MG, QD
     Route: 042
     Dates: start: 20200714, end: 20200717
  6. CISATRACURIUM. [Concomitant]
     Active Substance: CISATRACURIUM
     Dosage: 0.05 MG/KG
     Route: 042
     Dates: start: 20200713, end: 20200723
  7. MUPIROCIN. [Concomitant]
     Active Substance: MUPIROCIN
     Dosage: UNK
     Dates: start: 20200713, end: 20200718
  8. DILTIAZEM. [Concomitant]
     Active Substance: DILTIAZEM
     Indication: HYPERTENSION
     Dosage: 2.5?15 MG/HR
     Route: 042
     Dates: start: 20200713, end: 20200715
  9. ENOXAPARIN [Concomitant]
     Active Substance: ENOXAPARIN
     Dosage: 30 MG
     Route: 058
     Dates: start: 20200712, end: 20200713
  10. HEPARIN [Concomitant]
     Active Substance: HEPARIN SODIUM
     Dosage: 1000 UNITS
     Route: 042
     Dates: start: 20200713, end: 20200713
  11. FAMOTIDINE. [Concomitant]
     Active Substance: FAMOTIDINE
     Indication: DYSPEPSIA
     Dosage: UNK
     Dates: start: 20200714, end: 20200806
  12. FUROSEMIDE. [Concomitant]
     Active Substance: FUROSEMIDE
     Indication: FLUID RETENTION
     Dosage: 20 MG
     Route: 042
     Dates: start: 20200714, end: 20200718
  13. MULTIVITAMIN IRON [Concomitant]
     Dosage: 15 ML
     Route: 048
     Dates: start: 20200714, end: 20200804
  14. PROPOFOL. [Concomitant]
     Active Substance: PROPOFOL
     Indication: PAIN
     Dosage: 40 MCG
     Route: 042
     Dates: start: 20200713, end: 20200720
  15. MIDAZOLAM. [Concomitant]
     Active Substance: MIDAZOLAM
     Indication: SEDATION
     Dosage: 2?6 ML/HR
     Route: 042
     Dates: start: 20200713, end: 20200814
  16. NOREPINEPHRINE. [Concomitant]
     Active Substance: NOREPINEPHRINE
     Indication: HYPOTENSION
     Dosage: 16 MG
     Route: 042
     Dates: start: 20200713, end: 20200719
  17. ASPIRIN (E.C.) [Concomitant]
     Active Substance: ASPIRIN
     Dosage: 81 MG
     Route: 048
     Dates: start: 20200713, end: 20200713
  18. CETYLPYRIDINIUM CHLORIDE. [Concomitant]
     Active Substance: CETYLPYRIDINIUM CHLORIDE
     Dosage: 0.05% SWAB
     Route: 061
     Dates: start: 20200713, end: 20200808
  19. REMDESIVIR. [Suspect]
     Active Substance: REMDESIVIR
     Indication: COVID-19
     Dosage: 200 MG, QD
     Route: 042
     Dates: start: 20200713, end: 20200713
  20. POLYETHYLENE GLYCOL 3350. [Concomitant]
     Active Substance: POLYETHYLENE GLYCOL 3350
     Indication: NUTRITIONAL SUPPLEMENTATION
     Dosage: 17 G
     Dates: start: 20200715, end: 20200719
  21. SENNOSIDES. [Concomitant]
     Active Substance: SENNOSIDES
     Dosage: 10 ML
     Dates: start: 20200715, end: 20200720
  22. CHLORHEXIDINE [Concomitant]
     Active Substance: CHLORHEXIDINE
     Dosage: 15 ML, BID
     Route: 002
     Dates: start: 20200713, end: 20200814
  23. HEPARIN [Concomitant]
     Active Substance: HEPARIN SODIUM
     Indication: PROPHYLAXIS
     Dosage: UNK
     Dates: start: 20200713, end: 20200721
  24. HEPARIN [Concomitant]
     Active Substance: HEPARIN SODIUM
     Dosage: 6800 UNITS
     Route: 042
     Dates: start: 20200713, end: 20200713
  25. INSULIN LISPRO [Concomitant]
     Active Substance: INSULIN LISPRO
     Dosage: 1?18 UNITS
     Route: 058
     Dates: start: 20200715, end: 20200722

REACTIONS (1)
  - Acute kidney injury [Recovered/Resolved]

NARRATIVE: CASE EVENT DATE: 20200714
